FAERS Safety Report 8459299 (Version 7)
Quarter: 2012Q4

REPORT INFORMATION
  Report Type: 
  Country: DE (occurrence: DE)
  Receive Date: 20120314
  Receipt Date: 20121008
  Transmission Date: 20130627
  Serious: Yes (Hospitalization)
  Sender: FDA-Public Use
  Company Number: DE-AMGEN-DEUSP2012015651

PATIENT
  Sex: Male

DRUGS (18)
  1. NEULASTA [Suspect]
     Indication: B-CELL LYMPHOMA
     Dosage: 6 mg, UNK
     Route: 058
     Dates: start: 20120206, end: 20120420
  2. RITUXIMAB [Suspect]
     Indication: B-CELL LYMPHOMA
     Dosage: 750 mg, UNK
     Route: 042
     Dates: start: 20120201, end: 20120416
  3. CYCLOPHOSPHAMIDE [Suspect]
     Indication: B-CELL LYMPHOMA
     Dosage: 1500 mg, UNK
     Route: 042
     Dates: start: 20120202, end: 20120417
  4. DOXORUBICIN [Suspect]
     Indication: B-CELL LYMPHOMA
     Dosage: 100 mg, UNK
     Route: 042
     Dates: start: 20120202, end: 20120417
  5. VINCRISTINE [Suspect]
     Indication: B-CELL LYMPHOMA
     Dosage: 2 mg, UNK
     Route: 042
     Dates: start: 20120202, end: 20120417
  6. PREDNISOLONE [Suspect]
     Indication: B-CELL LYMPHOMA
     Dosage: 100 mg, UNK
     Route: 048
     Dates: start: 20120202, end: 20120421
  7. RULID [Concomitant]
     Dosage: 300 mg, UNK
     Route: 048
     Dates: start: 20120201, end: 20120214
  8. ACICLOVIR [Concomitant]
     Dosage: 400 mg, UNK
     Route: 048
     Dates: start: 20120210
  9. MST                                /00036302/ [Concomitant]
     Indication: PAIN
     Dosage: 30 mg, bid
     Route: 048
     Dates: start: 20120416
  10. PANTOZOL [Concomitant]
     Dosage: 40 mg, UNK
     Route: 048
     Dates: start: 20120103
  11. PANTOZOL [Concomitant]
     Dosage: 40 mg, UNK
     Route: 048
     Dates: start: 20120416, end: 20120517
  12. PANTOZOL [Concomitant]
     Dosage: 30 mg, UNK
     Route: 048
     Dates: start: 20120523
  13. ELECTROLYTES NOS W/MACROGOL 3350 [Concomitant]
     Dosage: UNK
     Route: 048
     Dates: start: 20120131, end: 20120203
  14. NOVALGIN                           /00169801/ [Concomitant]
     Indication: PAIN
     Dosage: 500 mg, qid
     Route: 048
  15. PASPERTIN                          /00041902/ [Concomitant]
     Dosage: UNK UNK, tid
     Route: 048
  16. DIPYRONE [Concomitant]
     Indication: PAIN
     Dosage: 500 mg, qid
     Route: 048
  17. METOCLOPRAMIDE [Concomitant]
     Indication: VOMITING
     Dosage: 20 Gtt, UNK
     Route: 048
  18. ACICLOVIR [Concomitant]
     Dosage: 400 mg, UNK
     Route: 048

REACTIONS (4)
  - Febrile neutropenia [Recovered/Resolved]
  - Skin infection [Recovered/Resolved]
  - Neutropenia [Recovered/Resolved]
  - Pneumonitis [Recovered/Resolved]
